FAERS Safety Report 7594838-X (Version None)
Quarter: 2011Q2

REPORT INFORMATION
  Report Type: 
  Country: None (occurrence: None)
  Receive Date: 20110615
  Receipt Date: 20110207
  Transmission Date: 20111010
  Serious: Yes (Disabling)
  Sender: FDA-Public Use
  Company Number: DSA_44354_2010

PATIENT
  Sex: Male
  Weight: 97.5234 kg

DRUGS (2)
  1. XENAZINE [Suspect]
     Indication: HUNTINGTON'S DISEASE
     Dosage: (12.5 MG BID ORAL)
     Route: 048
     Dates: start: 20100807
  2. KLONOPIN [Concomitant]

REACTIONS (2)
  - ANGER [None]
  - AGGRESSION [None]
